FAERS Safety Report 14661150 (Version 1)
Quarter: 2018Q1

REPORT INFORMATION
  Report Type: Spontaneous
  Country: US (occurrence: US)
  Receive Date: 20180320
  Receipt Date: 20180320
  Transmission Date: 20180509
  Serious: Yes (Other)
  Sender: FDA-Public Use
  Company Number: US-TEVA-2018-US-872983

PATIENT

DRUGS (4)
  1. FLUDARABINE [Suspect]
     Active Substance: FLUDARABINE PHOSPHATE
     Dosage: ON DAYS -8 TO -4
     Route: 065
  2. THIOTEPA. [Suspect]
     Active Substance: THIOTEPA
     Dosage: 8 MG/KG ON DAY -4
     Route: 065
  3. ALEMTUZUMAB [Suspect]
     Active Substance: ALEMTUZUMAB
     Dosage: FOR THREE CONSECUTIVE DAYS BETWEEN DAYS -16 AND -11
     Route: 065
  4. MELPHALAN HYDROCHLORIDE. [Suspect]
     Active Substance: MELPHALAN HYDROCHLORIDE
     Dosage: ON DAY -3
     Route: 065

REACTIONS (1)
  - Adenovirus infection [Unknown]
